FAERS Safety Report 24115745 (Version 1)
Quarter: 2024Q3

REPORT INFORMATION
  Report Type: Spontaneous
  Country: JP (occurrence: JP)
  Receive Date: 20240721
  Receipt Date: 20240721
  Transmission Date: 20241017
  Serious: Yes (Death)
  Sender: BAYER
  Company Number: JP-BAYER-2024A105165

PATIENT
  Age: 7 Decade
  Sex: Male

DRUGS (2)
  1. VITRAKVI [Suspect]
     Active Substance: LAROTRECTINIB
     Indication: Pancreatic carcinoma
     Dosage: DAILY DOSE 200 MG
     Dates: start: 20240712, end: 20240713
  2. VITRAKVI [Suspect]
     Active Substance: LAROTRECTINIB
     Indication: NTRK gene fusion cancer

REACTIONS (2)
  - Pancreatic carcinoma [Fatal]
  - NTRK gene fusion cancer [Fatal]

NARRATIVE: CASE EVENT DATE: 20240714
